FAERS Safety Report 6712549-7 (Version None)
Quarter: 2010Q2

REPORT INFORMATION
  Report Type: 
  Country: None (occurrence: None)
  Receive Date: 20100506
  Receipt Date: 20100422
  Transmission Date: 20101027
  Serious: Yes (Hospitalization, Other)
  Sender: FDA-Public Use
  Company Number: US-BAYER-200942641NA

PATIENT
  Age: 27 Year
  Sex: Female
  Weight: 71 kg

DRUGS (7)
  1. YASMIN [Suspect]
     Indication: CONTRACEPTION
     Route: 048
     Dates: start: 20060916, end: 20061229
  2. HYDROCORTISONE [Concomitant]
     Route: 065
  3. SPIRIVA [Concomitant]
     Route: 065
  4. XOPENEX HFA [Concomitant]
     Route: 065
  5. MEDROXYPROGESTERONE [Concomitant]
     Route: 065
  6. SINGULAIR [Concomitant]
     Route: 065
  7. PULMICORT [Concomitant]
     Route: 055

REACTIONS (3)
  - INJURY [None]
  - PAIN IN EXTREMITY [None]
  - THROMBOPHLEBITIS SUPERFICIAL [None]
